FAERS Safety Report 4605758-4 (Version None)
Quarter: 2005Q1

REPORT INFORMATION
  Report Type: 
  Country: None (occurrence: None)
  Receive Date: 20050311
  Receipt Date: 20050307
  Transmission Date: 20050727
  Serious: Yes (Disabling)
  Sender: FDA-Public Use
  Company Number: US-MERCK-0503USA00981

PATIENT
  Age: 74 Year
  Sex: Female

DRUGS (2)
  1. FOSAMAX [Suspect]
     Indication: OSTEOPOROSIS
     Route: 048
     Dates: start: 20050222, end: 20050222
  2. ATENOLOL [Concomitant]
     Indication: HYPERTENSION
     Route: 065

REACTIONS (3)
  - BACK PAIN [None]
  - NECK PAIN [None]
  - OEDEMA PERIPHERAL [None]
